FAERS Safety Report 9143980 (Version 1)
Quarter: 2013Q1

REPORT INFORMATION
  Report Type: Spontaneous
  Country: US (occurrence: US)
  Receive Date: 20130306
  Receipt Date: 20130306
  Transmission Date: 20140127
  Serious: Yes (Hospitalization)
  Sender: FDA-Public Use
  Company Number: US-ROCHE-1196355

PATIENT
  Age: 69 Year
  Sex: Male

DRUGS (4)
  1. CELLCEPT [Suspect]
     Indication: MYASTHENIA GRAVIS
     Route: 065
     Dates: start: 2008
  2. CELLCEPT [Suspect]
     Route: 065
  3. PYRIDOSTIGMINE BROMIDE [Concomitant]
     Indication: MYASTHENIA GRAVIS
  4. OMEPRAZOLE [Concomitant]
     Indication: GASTROOESOPHAGEAL REFLUX DISEASE

REACTIONS (4)
  - Coronary artery bypass [Unknown]
  - Myasthenia gravis [Recovered/Resolved]
  - Gastrooesophageal reflux disease [Unknown]
  - Pleural effusion [Unknown]
